FAERS Safety Report 12037260 (Version 1)
Quarter: 2016Q1

REPORT INFORMATION
  Report Type: Spontaneous
  Country: US (occurrence: None)
  Receive Date: 20160205
  Receipt Date: 20160205
  Transmission Date: 20160526
  Serious: Yes (Other)
  Sender: FDA-Public Use
  Company Number: None

PATIENT
  Age: 61 Year
  Sex: Male
  Weight: 79.38 kg

DRUGS (4)
  1. OXYCODONE [Suspect]
     Active Substance: OXYCODONE
     Indication: BACK PAIN
     Dosage: LEVERY 8-12 HRS, AS NEEDED, TAKEN BY MOUTH
     Dates: start: 20160202, end: 20160203
  2. SUCRALFATE. [Concomitant]
     Active Substance: SUCRALFATE
  3. LOSARTAN. [Concomitant]
     Active Substance: LOSARTAN
  4. PRILOSEC [Concomitant]
     Active Substance: OMEPRAZOLE MAGNESIUM

REACTIONS (5)
  - Hypertension [None]
  - Heart rate increased [None]
  - Flushing [None]
  - Abdominal pain upper [None]
  - Pollakiuria [None]

NARRATIVE: CASE EVENT DATE: 20160203
